FAERS Safety Report 4462028-5 (Version None)
Quarter: 2004Q3

REPORT INFORMATION
  Report Type: 
  Country: None (occurrence: None)
  Receive Date: 20040929
  Receipt Date: 20040924
  Transmission Date: 20050211
  Serious: Yes (Life-Threatening, Other)
  Sender: FDA-Public Use
  Company Number: US-BRISTOL-MYERS SQUIBB COMPANY-12712063

PATIENT
  Age: 59 Year
  Sex: Male
  Weight: 76 kg

DRUGS (5)
  1. ERBITUX [Suspect]
     Indication: COLON CANCER METASTATIC
     Dosage: FIRST DOSE, STOPPED AFTER ABOUT 5 MINUTES
     Route: 042
     Dates: start: 20040831, end: 20040831
  2. BENADRYL [Concomitant]
     Indication: PREMEDICATION
     Route: 042
     Dates: start: 20040831, end: 20040831
  3. ZOLOFT [Concomitant]
     Dates: start: 20040401
  4. MICRO-K [Concomitant]
     Dates: start: 20040601
  5. LOMOTIL [Concomitant]
     Dates: start: 20040601

REACTIONS (7)
  - ABNORMAL BEHAVIOUR [None]
  - BLOOD PRESSURE IMMEASURABLE [None]
  - CYANOSIS [None]
  - DYSPNOEA [None]
  - ERYTHEMA [None]
  - OXYGEN SATURATION ABNORMAL [None]
  - PARAESTHESIA [None]
